FAERS Safety Report 6853050-X (Version None)
Quarter: 2010Q3

REPORT INFORMATION
  Report Type: 
  Country: None (occurrence: None)
  Receive Date: 20100717
  Receipt Date: 20071129
  Transmission Date: 20110219
  Serious: Yes (Other)
  Sender: FDA-Public Use
  Company Number: US-PFIZER INC-2007101435

PATIENT
  Sex: Female

DRUGS (1)
  1. CHANTIX [Suspect]
     Indication: SMOKING CESSATION THERAPY
     Dates: start: 20071118, end: 20071128

REACTIONS (5)
  - ABNORMAL DREAMS [None]
  - CRYING [None]
  - DECREASED APPETITE [None]
  - INSOMNIA [None]
  - SUICIDAL IDEATION [None]
